FAERS Safety Report 6372412-0 (Version None)
Quarter: 2009Q3

REPORT INFORMATION
  Report Type: 
  Country: None (occurrence: None)
  Receive Date: 20090924
  Receipt Date: 20080825
  Transmission Date: 20100115
  Serious: Yes (Hospitalization)
  Sender: FDA-Public Use
  Company Number: US-ASTRAZENECA-2008UW17364

PATIENT
  Age: 55 Year
  Sex: Male

DRUGS (8)
  1. SEROQUEL [Suspect]
     Route: 048
  2. SEROQUEL [Suspect]
     Dosage: 30 DOSE FORMS OF SEROQUEL
     Route: 048
     Dates: start: 20080628, end: 20080628
  3. WELLBUTRIN [Suspect]
     Route: 048
  4. WELLBUTRIN [Suspect]
     Dosage: 30 DOSE FORMS OF BUPROPION
     Route: 048
     Dates: start: 20080628, end: 20080628
  5. CLONIDINE [Suspect]
     Route: 048
  6. CLONIDINE [Suspect]
     Dosage: 15 DOSE FORMS OF CLONIDINE
     Route: 048
     Dates: start: 20080628, end: 20080628
  7. PEG-INTERFERON ALFA 2A [Suspect]
     Indication: HEPATITIS C VIRUS TEST
     Dates: start: 20080603, end: 20080628
  8. RIBAVIRON [Suspect]
     Indication: HEPATITIS C VIRUS TEST
     Dosage: 400 MG  2 PER DAY
     Dates: start: 20070814, end: 20080628

REACTIONS (2)
  - INTENTIONAL OVERDOSE [None]
  - SUICIDE ATTEMPT [None]
